FAERS Safety Report 12373066 (Version 1)
Quarter: 2016Q2

REPORT INFORMATION
  Report Type: Report from Study
  Country: US (occurrence: US)
  Receive Date: 20160516
  Receipt Date: 20160516
  Transmission Date: 20160815
  Serious: Yes (Hospitalization)
  Sender: FDA-Public Use
  Company Number: US-MALLINCKRODT-T201504492

PATIENT
  Age: 67 Year
  Sex: Female
  Weight: 43 kg

DRUGS (11)
  1. FENOFIBRIC ACID. [Concomitant]
     Active Substance: FENOFIBRIC ACID
     Dosage: 135 MG, QD
     Route: 048
  2. EPOGEN [Concomitant]
     Active Substance: ERYTHROPOIETIN
     Dosage: 4000 UNITS EVERY TU/TH/SA
     Route: 042
  3. LIPITOR [Concomitant]
     Active Substance: ATORVASTATIN CALCIUM
     Dosage: 20 MG, QHS
     Route: 048
  4. KEPPRA [Concomitant]
     Active Substance: LEVETIRACETAM
     Dosage: 500 MG, BID
     Route: 048
  5. LIDOCAINE AND PRILOCAINE [Concomitant]
     Active Substance: LIDOCAINE\PRILOCAINE
     Dosage: 2.5%-2.5% TOPICAL KIT, ONCE
     Route: 061
  6. H.P. ACTHAR [Suspect]
     Active Substance: CORTICOTROPIN
     Indication: PRODUCT USED FOR UNKNOWN INDICATION
     Dosage: 40U, 2X/WEEK
     Route: 058
     Dates: start: 20150627, end: 20150814
  7. CARAFATE [Concomitant]
     Active Substance: SUCRALFATE
     Dosage: 1 G, BID
     Route: 048
  8. LOPERAMIDE [Concomitant]
     Active Substance: LOPERAMIDE
     Dosage: 2 MG,  Q4H-INT, PRN
     Route: 048
  9. MIDODRINE [Concomitant]
     Active Substance: MIDODRINE
     Dosage: 10 MG, BID
     Route: 048
  10. MULTIVITAMIN                       /00097801/ [Concomitant]
     Active Substance: VITAMINS
     Dosage: DAILY
     Route: 065
  11. NEXIUM [Concomitant]
     Active Substance: ESOMEPRAZOLE MAGNESIUM
     Dosage: 20 MG
     Route: 048

REACTIONS (3)
  - Decreased appetite [Unknown]
  - Depression [Recovering/Resolving]
  - Fatigue [Unknown]

NARRATIVE: CASE EVENT DATE: 20150814
